FAERS Safety Report 6728622-3 (Version None)
Quarter: 2010Q2

REPORT INFORMATION
  Report Type: 
  Country: None (occurrence: None)
  Receive Date: 20100517
  Receipt Date: 20100504
  Transmission Date: 20101027
  Serious: Yes (Other)
  Sender: FDA-Public Use
  Company Number: US-ELI_LILLY_AND_COMPANY-US201005002600

PATIENT
  Sex: Female

DRUGS (1)
  1. SYMBYAX [Suspect]
     Indication: BIPOLAR I DISORDER
     Dosage: 1 D/F, DAILY (1/D)
     Dates: start: 20100127, end: 20100211

REACTIONS (3)
  - BLOOD PROLACTIN INCREASED [None]
  - INJURY [None]
  - ROAD TRAFFIC ACCIDENT [None]
